FAERS Safety Report 6111212-3 (Version None)
Quarter: 2009Q1

REPORT INFORMATION
  Report Type: 
  Country: None (occurrence: None)
  Receive Date: 20090311
  Receipt Date: 20090305
  Transmission Date: 20090719
  Serious: Yes (Other)
  Sender: FDA-Public Use
  Company Number: US-AVENTIS-200911784US

PATIENT
  Age: 46 Year
  Sex: Female

DRUGS (2)
  1. CLOMID [Suspect]
     Indication: INFERTILITY
     Route: 048
     Dates: start: 20090224
  2. ALDARA [Suspect]
     Indication: BASAL CELL CARCINOMA
     Dosage: DOSE: 5 TIMES WEEKLY
     Route: 061
     Dates: start: 20090223

REACTIONS (2)
  - BASAL CELL CARCINOMA [None]
  - CONDITION AGGRAVATED [None]
